FAERS Safety Report 5467884-X (Version None)
Quarter: 2007Q3

REPORT INFORMATION
  Report Type: 
  Country: None (occurrence: None)
  Receive Date: 20070921
  Receipt Date: 20070912
  Transmission Date: 20080115
  Serious: No
  Sender: FDA-Public Use
  Company Number: 2007-164233-NL

PATIENT
  Age: 35 Year
  Sex: Female

DRUGS (35)
  1. MIRTAZAPINE [Suspect]
     Dosage: 15 MG
  2. ALUMINUM HYDROXIDE W/ MAGNESIUM HYDROXIDE [Concomitant]
  3. AZATHIOPRINE [Concomitant]
  4. BROMOCRIPTINE MESYLATE [Concomitant]
  5. CELECOXIB [Concomitant]
  6. FERROUS GLUCONATE [Concomitant]
  7. FUROSEMIDE [Concomitant]
  8. HEPARIN [Concomitant]
  9. METFORMIN HCL [Concomitant]
  10. MULTIVITAMINS WITH MINERALS [Concomitant]
  11. VERAPAMIL [Concomitant]
  12. TOPIRAMATE [Concomitant]
  13. SALMETEROL XINAFOATE [Concomitant]
  14. RISEDRONATE SODIUM [Concomitant]
  15. PYRIDOXINE HCL [Concomitant]
  16. PREDNISONE [Concomitant]
  17. POTASSIUM CHLORIDE [Concomitant]
  18. PANTOPRAZOLE SODIUM [Concomitant]
  19. BREVICON [Concomitant]
  20. DOCUSATE [Concomitant]
  21. NYSTATIN [Concomitant]
  22. CLOTRIMAZOLE [Concomitant]
  23. VENLAFAXIINE HCL [Concomitant]
  24. HEPARIN-FRACTION, SODIUM SALT [Concomitant]
  25. SALBUTAMOL [Concomitant]
  26. DIMENHYDRINATE [Concomitant]
  27. ALMOTRIPTAN MALATE [Concomitant]
  28. CODEINE SUL TAB [Concomitant]
  29. WARFARIN SODIUM [Concomitant]
  30. MONTELUKAST SODIUM [Concomitant]
  31. HYDROCHLOROTHIAZIDE [Concomitant]
  32. GABAPENTIN [Concomitant]
  33. FOLIC ACID [Concomitant]
  34. CODEINE CONTIN [Concomitant]
  35. CALCIUM CARBONATE [Concomitant]

REACTIONS (1)
  - SOMNAMBULISM [None]
